FAERS Safety Report 8383591 (Version 2)
Quarter: 2012Q4

REPORT INFORMATION
  Report Type: 
  Country: US (occurrence: US)
  Receive Date: 20120201
  Receipt Date: 20121015
  Transmission Date: 20130627
  Serious: Yes (Hospitalization)
  Sender: FDA-Public Use
  Company Number: US-US-EMD SERONO, INC.-7109113

PATIENT
  Age: 40 None
  Sex: Female
  Weight: 79 kg

DRUGS (3)
  1. REBIF [Suspect]
     Indication: MULTIPLE SCLEROSIS
     Route: 058
     Dates: start: 20111031, end: 20120201
  2. IBUPROFEN [Concomitant]
     Indication: PREMEDICATION
  3. UNSPECIFIED MEDICATION [Concomitant]
     Indication: PRODUCT USED FOR UNKNOWN INDICATION

REACTIONS (2)
  - Tremor [Recovering/Resolving]
  - Injection site erythema [Not Recovered/Not Resolved]
